FAERS Safety Report 15780399 (Version 1)
Quarter: 2019Q1

REPORT INFORMATION
  Report Type: Spontaneous
  Country: GB (occurrence: GB)
  Receive Date: 20190102
  Receipt Date: 20190102
  Transmission Date: 20190417
  Serious: Yes (Hospitalization, Disabling)
  Sender: FDA-Public Use
  Company Number: GB-TEVA-2018-GB-993877

PATIENT
  Age: 85 Year
  Sex: Female

DRUGS (6)
  1. MADOPAR [Suspect]
     Active Substance: BENSERAZIDE HYDROCHLORIDE\LEVODOPA
     Route: 065
  2. CEFALEXIN [Concomitant]
     Active Substance: CEPHALEXIN
  3. PROCHLORPERAZINE. [Suspect]
     Active Substance: PROCHLORPERAZINE
     Indication: VOMITING
     Dosage: 12.5MG/1ML STAT
     Dates: start: 20181106, end: 20181106
  4. PROCHLORPERAZINE. [Interacting]
     Active Substance: PROCHLORPERAZINE
     Dosage: 2 TABLETS
     Route: 002
     Dates: start: 20181107, end: 20181107
  5. CITALOPRAM [Concomitant]
     Active Substance: CITALOPRAM HYDROBROMIDE
  6. PARACETAMOL [Concomitant]
     Active Substance: ACETAMINOPHEN

REACTIONS (6)
  - Somnolence [Unknown]
  - Parkinsonian crisis [Not Recovered/Not Resolved]
  - Drug interaction [Unknown]
  - Gait inability [Unknown]
  - Aphasia [Unknown]
  - Dysphagia [Unknown]

NARRATIVE: CASE EVENT DATE: 20181107
